FAERS Safety Report 9717334 (Version 1)
Quarter: 2013Q4

REPORT INFORMATION
  Report Type: Spontaneous
  Country: US (occurrence: US)
  Receive Date: 20131127
  Receipt Date: 20131127
  Transmission Date: 20140711
  Serious: Yes (Other)
  Sender: FDA-Public Use
  Company Number: US-SA-2013SA122625

PATIENT
  Age: 62 Year
  Sex: Male
  Weight: 115 kg

DRUGS (18)
  1. PLAVIX [Suspect]
     Indication: PRODUCT USED FOR UNKNOWN INDICATION
     Route: 048
  2. XARELTO [Suspect]
     Indication: ATRIAL FIBRILLATION
     Route: 065
     Dates: start: 20130522
  3. XARELTO [Suspect]
     Indication: CEREBROVASCULAR ACCIDENT PROPHYLAXIS
     Route: 065
     Dates: start: 20130522
  4. XARELTO [Suspect]
     Indication: ATRIAL FIBRILLATION
     Route: 065
     Dates: end: 20130801
  5. XARELTO [Suspect]
     Indication: CEREBROVASCULAR ACCIDENT PROPHYLAXIS
     Route: 065
     Dates: end: 20130801
  6. ASPIRIN [Suspect]
     Indication: PRODUCT USED FOR UNKNOWN INDICATION
     Route: 065
  7. DULERA [Concomitant]
     Route: 055
  8. CLARITHROMYCIN [Concomitant]
     Route: 048
  9. MAXZIDE [Concomitant]
     Indication: POLYURIA
  10. AMLODIPINE BESILATE [Concomitant]
     Route: 048
  11. LISINOPRIL [Concomitant]
  12. CARDIZEM [Concomitant]
     Route: 048
  13. PRAVACHOL [Concomitant]
     Dosage: DOSE: 0.5
     Route: 048
  14. NOVOLIN [Concomitant]
     Route: 058
  15. METFORMIN [Concomitant]
     Route: 048
  16. METOPROLOL [Concomitant]
     Route: 048
  17. GLIMEPIRIDE [Concomitant]
     Route: 048
  18. FISH OIL [Concomitant]

REACTIONS (2)
  - Lymphadenopathy [Not Recovered/Not Resolved]
  - Haematuria [Not Recovered/Not Resolved]
